FAERS Safety Report 25440080 (Version 3)
Quarter: 2025Q4

REPORT INFORMATION
  Report Type: Report from Study
  Country: CA (occurrence: CA)
  Receive Date: 20250616
  Receipt Date: 20251230
  Transmission Date: 20260118
  Serious: Yes (Other)
  Sender: PFIZER
  Company Number: CA-PFIZER INC-202500120873

PATIENT
  Age: 32 Year
  Sex: Female
  Weight: 91 kg

DRUGS (7)
  1. RUXIENCE [Suspect]
     Active Substance: RITUXIMAB-PVVR
     Indication: Myasthenia gravis
     Dosage: 1 DF, WEEKLY, 746.25 MG WEEKLY DOSE X 4 WEEKS
     Route: 042
     Dates: start: 20250528
  2. RUXIENCE [Suspect]
     Active Substance: RITUXIMAB-PVVR
     Dosage: 746.25 MG, AFTER 6 DAYS
     Route: 042
     Dates: start: 20250611
  3. RUXIENCE [Suspect]
     Active Substance: RITUXIMAB-PVVR
     Dosage: 746.25 MG, AFTER 6 DAYS
     Route: 042
     Dates: start: 20250611
  4. RUXIENCE [Suspect]
     Active Substance: RITUXIMAB-PVVR
     Dosage: 746.25 MG, AFTER 1WEEK AND 5 DAYS (PRESCRIBED TREATMENTS ARE EVERY WEEK)
     Route: 042
     Dates: start: 20250623
  5. RUXIENCE [Suspect]
     Active Substance: RITUXIMAB-PVVR
     Dosage: 746.25 MG, AFTER 1WEEK AND 5 DAYS (PRESCRIBED TREATMENTS ARE EVERY WEEK)
     Route: 042
     Dates: start: 20250623
  6. ACETAMINOPHEN [Concomitant]
     Active Substance: ACETAMINOPHEN
     Dosage: 325 MG
     Route: 048
  7. DIPHENHYDRAMINE [Concomitant]
     Active Substance: DIPHENHYDRAMINE
     Dosage: 25 MG
     Route: 048

REACTIONS (2)
  - Feeling hot [Recovered/Resolved]
  - Inappropriate schedule of product administration [Unknown]

NARRATIVE: CASE EVENT DATE: 20250611
